FAERS Safety Report 20425000 (Version 1)
Quarter: 2022Q1

REPORT INFORMATION
  Report Type: Report from Study
  Country: US (occurrence: US)
  Receive Date: 20220204
  Receipt Date: 20220204
  Transmission Date: 20220423
  Serious: No
  Sender: FDA-Public Use
  Company Number: US-EXELIXIS-CABO-20036098

PATIENT
  Sex: Female

DRUGS (9)
  1. COMETRIQ [Suspect]
     Active Substance: CABOZANTINIB S-MALATE
     Indication: Thyroid cancer
     Dosage: 60 MG, QD
     Route: 048
     Dates: start: 20200930
  2. COMETRIQ [Suspect]
     Active Substance: CABOZANTINIB S-MALATE
     Dosage: ONE 20 MG CAPSULE DAILY INSTEAD OF THREE 20 MG CAPSULE
     Route: 048
  3. VITAMIN D3 [Concomitant]
     Active Substance: CHOLECALCIFEROL
  4. ALLOPURINOL [Concomitant]
     Active Substance: ALLOPURINOL
  5. METOPROLOL TARTRATE [Concomitant]
     Active Substance: METOPROLOL TARTRATE
  6. HYDROCHLOROTHIAZIDE [Concomitant]
     Active Substance: HYDROCHLOROTHIAZIDE
  7. AMLODIPINE [Concomitant]
     Active Substance: AMLODIPINE BESYLATE
  8. POTASSIUM SODIUM TARTRATE [Concomitant]
     Active Substance: POTASSIUM SODIUM TARTRATE
  9. TORSEMIDE [Concomitant]
     Active Substance: TORSEMIDE

REACTIONS (3)
  - Osteoarthritis [Unknown]
  - Pain in extremity [Recovering/Resolving]
  - Diarrhoea [Recovering/Resolving]
